FAERS Safety Report 20591664 (Version 1)
Quarter: 2022Q1

REPORT INFORMATION
  Report Type: Spontaneous
  Country: FR (occurrence: FR)
  Receive Date: 20220314
  Receipt Date: 20220314
  Transmission Date: 20220423
  Serious: Yes (Other)
  Sender: FDA-Public Use
  Company Number: None

PATIENT
  Age: 45 Year
  Sex: Male

DRUGS (1)
  1. ELETRIPTAN HYDROBROMIDE [Suspect]
     Active Substance: ELETRIPTAN HYDROBROMIDE
     Dosage: UNK
     Route: 048

REACTIONS (2)
  - Drug abuse [Not Recovered/Not Resolved]
  - Drug dependence [Not Recovered/Not Resolved]
